FAERS Safety Report 5551135-1 (Version None)
Quarter: 2007Q4

REPORT INFORMATION
  Report Type: 
  Country: None (occurrence: None)
  Receive Date: 20071212
  Receipt Date: 20071211
  Transmission Date: 20080405
  Serious: Yes (Life-Threatening, Hospitalization, Disabling)
  Sender: FDA-Public Use
  Company Number: B0499094A

PATIENT
  Age: 11 Year
  Sex: Female
  Weight: 36 kg

DRUGS (4)
  1. LAMOTRIGINE [Suspect]
     Dosage: 25MG PER DAY
     Route: 048
     Dates: start: 20071011, end: 20071022
  2. VALPROATE SODIUM [Concomitant]
     Route: 048
     Dates: start: 20070404, end: 20071030
  3. ERYTHROMYCIN [Concomitant]
     Route: 048
     Dates: start: 20071001, end: 20071001
  4. TRIMETHOPRIM [Concomitant]
     Route: 048
     Dates: start: 20071001, end: 20071001

REACTIONS (8)
  - ANURIA [None]
  - DISSEMINATED INTRAVASCULAR COAGULATION [None]
  - HYPOTENSION [None]
  - MUCOSAL INFLAMMATION [None]
  - MULTI-ORGAN FAILURE [None]
  - RASH MACULO-PAPULAR [None]
  - RENAL FAILURE [None]
  - SEPTIC SHOCK [None]
